FAERS Safety Report 24811233 (Version 1)
Quarter: 2025Q1

REPORT INFORMATION
  Report Type: Spontaneous
  Country: US (occurrence: US)
  Receive Date: 20250106
  Receipt Date: 20250106
  Transmission Date: 20250408
  Serious: No
  Sender: INCYTE
  Company Number: US-EVENT-000930

PATIENT

DRUGS (9)
  1. OPZELURA [Suspect]
     Active Substance: RUXOLITINIB PHOSPHATE
     Indication: Pruritus
     Route: 061
  2. TACROLIMUS [Concomitant]
     Active Substance: TACROLIMUS
     Indication: Pruritus
     Route: 061
  3. ROFLUMILAST [Concomitant]
     Active Substance: ROFLUMILAST
     Indication: Pruritus
     Route: 061
  4. NALTREXONE [Concomitant]
     Active Substance: NALTREXONE
     Indication: Pruritus
     Route: 065
  5. TAPINAROF [Concomitant]
     Active Substance: TAPINAROF
     Indication: Pruritus
     Route: 065
  6. CAPSAICIN [Concomitant]
     Active Substance: CAPSAICIN
     Indication: Pruritus
     Route: 065
  7. METHOTREXATE [Concomitant]
     Active Substance: METHOTREXATE
     Indication: Pruritus
     Route: 048
  8. DUPILUMAB [Concomitant]
     Active Substance: DUPILUMAB
     Indication: Pruritus
     Route: 065
  9. GABAPENTIN [Concomitant]
     Active Substance: GABAPENTIN
     Indication: Pruritus
     Route: 065

REACTIONS (2)
  - Off label use [Unknown]
  - Drug ineffective for unapproved indication [Unknown]
